FAERS Safety Report 6156678-8 (Version None)
Quarter: 2009Q2

REPORT INFORMATION
  Report Type: 
  Country: None (occurrence: None)
  Receive Date: 20090413
  Receipt Date: 20090413
  Transmission Date: 20091009
  Serious: No
  Sender: FDA-Public Use
  Company Number: None

PATIENT
  Age: 64 Year
  Sex: Male

DRUGS (1)
  1. SIMVASTATIN [Suspect]
     Indication: HYPERLIPIDAEMIA
     Dates: start: 20090302, end: 20090407

REACTIONS (9)
  - BLOOD CREATINE PHOSPHOKINASE INCREASED [None]
  - CHEST PAIN [None]
  - DIABETES MELLITUS [None]
  - HYPERLIPIDAEMIA [None]
  - HYPERTENSION [None]
  - INFLAMMATION [None]
  - MUSCLE SPASMS [None]
  - MYALGIA [None]
  - MYOSITIS [None]
